FAERS Safety Report 7367265-8 (Version None)
Quarter: 2011Q1

REPORT INFORMATION
  Report Type: 
  Country: None (occurrence: None)
  Receive Date: 20110322
  Receipt Date: 20110311
  Transmission Date: 20110831
  Serious: Yes (Hospitalization, Other)
  Sender: FDA-Public Use
  Company Number: US-PFIZER INC-2006031817

PATIENT
  Sex: Male

DRUGS (8)
  1. TRAZODONE [Concomitant]
     Dosage: UNK
     Dates: end: 20020311
  2. DEPAKOTE [Concomitant]
     Dosage: UNK
  3. CELEXA [Concomitant]
     Dosage: UNK
     Dates: start: 20020314
  4. NEURONTIN [Suspect]
     Indication: ILL-DEFINED DISORDER
     Dosage: 600 MG, 2X/DAY
  5. RISPERDAL [Concomitant]
     Dosage: UNK
     Dates: end: 20020311
  6. NEURONTIN [Suspect]
     Dosage: 300 MG, UNK
     Dates: start: 20010705
  7. EFFEXOR [Concomitant]
     Dosage: UNK
     Dates: end: 20020311
  8. REBETOL [Concomitant]
     Dosage: UNK

REACTIONS (6)
  - SLEEP DISORDER [None]
  - SUICIDAL IDEATION [None]
  - DEPRESSION [None]
  - HALLUCINATION, AUDITORY [None]
  - THINKING ABNORMAL [None]
  - BIPOLAR DISORDER [None]
